FAERS Safety Report 6517932-0 (Version None)
Quarter: 2009Q4

REPORT INFORMATION
  Report Type: 
  Country: None (occurrence: None)
  Receive Date: 20091218
  Receipt Date: 20091211
  Transmission Date: 20100525
  Serious: Yes (Death, Life-Threatening)
  Sender: FDA-Public Use
  Company Number: 2009JP005211

PATIENT
  Age: 54 Year
  Sex: Male
  Weight: 61.4 kg

DRUGS (12)
  1. PROGRAF [Suspect]
     Indication: BONE MARROW TRANSPLANT
     Dosage: 5 MG, /D, IV BOLUS; 0.9 MG /D, IV BOLUS
     Route: 040
     Dates: start: 20090804, end: 20090804
  2. CYCLOPHOSPHAMIDE [Suspect]
  3. PRODIF (FOSFLUCONAZOLE) [Concomitant]
  4. FLUDARABINE (FLUDARBINE) [Concomitant]
  5. CYCLOPHOSPHAMIDE [Concomitant]
  6. CEFEPIME [Concomitant]
  7. MEROPENEN (MEROPENEM) [Concomitant]
  8. VANCOMYCIN [Concomitant]
  9. HANP (CARPERITIDE) [Concomitant]
  10. DOPAMINE HYDROCHLORIDE [Concomitant]
  11. ELASPOL (SIVELESTAT SODIUM) [Concomitant]
  12. METHOTREXATE [Concomitant]

REACTIONS (16)
  - BLOOD PRESSURE DECREASED [None]
  - CEREBRAL HAEMORRHAGE [None]
  - CONTINUOUS HAEMODIAFILTRATION [None]
  - DRUG LEVEL INCREASED [None]
  - EMBOLISM [None]
  - ENCEPHALOMALACIA [None]
  - HEPATIC FAILURE [None]
  - INCORRECT DRUG ADMINISTRATION RATE [None]
  - INCORRECT ROUTE OF DRUG ADMINISTRATION [None]
  - LIVER ABSCESS [None]
  - MULTI-ORGAN FAILURE [None]
  - PLATELET COUNT DECREASED [None]
  - PNEUMONIA [None]
  - STAPHYLOCOCCAL SEPSIS [None]
  - URINE OUTPUT DECREASED [None]
  - VISUAL IMPAIRMENT [None]
